FAERS Safety Report 6928339-6 (Version None)
Quarter: 2010Q3

REPORT INFORMATION
  Report Type: 
  Country: None (occurrence: None)
  Receive Date: 20100817
  Receipt Date: 20100804
  Transmission Date: 20110219
  Serious: Yes (Other)
  Sender: FDA-Public Use
  Company Number: US-BAYER-201029699NA

PATIENT
  Age: 80 Year
  Sex: Male
  Weight: 64 kg

DRUGS (2)
  1. ULTRAVIST 370 [Suspect]
     Indication: COMPUTERISED TOMOGRAM THORAX
     Dosage: AS USED: 80 ML  UNIT DOSE: 500 ML
     Route: 042
     Dates: start: 20100803, end: 20100803
  2. COREG [Concomitant]

REACTIONS (4)
  - CRYING [None]
  - IRRITABILITY [None]
  - PRURITUS [None]
  - URTICARIA [None]
